FAERS Safety Report 5722748-9 (Version None)
Quarter: 2008Q2

REPORT INFORMATION
  Report Type: 
  Country: None (occurrence: None)
  Receive Date: 20080429
  Receipt Date: 20080422
  Transmission Date: 20081010
  Serious: No
  Sender: FDA-Public Use
  Company Number: US-BAXTER-2008BH003478

PATIENT
  Age: 37 Year
  Sex: Female

DRUGS (4)
  1. HEPARIN SODIUM [Suspect]
     Indication: FACTOR V DEFICIENCY
     Route: 058
     Dates: start: 20080111, end: 20080310
  2. CITRACAL [Concomitant]
     Indication: DRUG USE FOR UNKNOWN INDICATION
     Route: 065
  3. VITAMIN TAB [Concomitant]
     Indication: PREGNANCY
     Route: 065
  4. LOVENOX [Concomitant]
     Indication: COAGULOPATHY
     Route: 058
     Dates: start: 20080310

REACTIONS (2)
  - DRUG EXPOSURE DURING PREGNANCY [None]
  - NAUSEA [None]
